FAERS Safety Report 6479774-4 (Version None)
Quarter: 2009Q4

REPORT INFORMATION
  Report Type: 
  Country: None (occurrence: None)
  Receive Date: 20091208
  Receipt Date: 20091126
  Transmission Date: 20100525
  Serious: Yes (Hospitalization, Other)
  Sender: FDA-Public Use
  Company Number: PHHY2009GB17818

PATIENT
  Sex: Female

DRUGS (3)
  1. CLOZARIL [Suspect]
     Indication: SCHIZOPHRENIA
     Dosage: 100MG AM 300MG PM
     Dates: start: 19990712
  2. CLOZARIL [Suspect]
     Dosage: 350 MG DAILY
  3. CLOZARIL [Suspect]
     Dosage: 75 MG DAILY

REACTIONS (13)
  - ANTIPSYCHOTIC DRUG LEVEL INCREASED [None]
  - BLOOD ALKALINE PHOSPHATASE INCREASED [None]
  - FATIGUE [None]
  - GRAND MAL CONVULSION [None]
  - HEADACHE [None]
  - INFECTION [None]
  - LETHARGY [None]
  - MALAISE [None]
  - MUSCLE TWITCHING [None]
  - NEOPLASM MALIGNANT [None]
  - PETIT MAL EPILEPSY [None]
  - TREMOR [None]
  - WEIGHT DECREASED [None]
